FAERS Safety Report 6561073-3 (Version None)
Quarter: 2010Q1

REPORT INFORMATION
  Report Type: 
  Country: None (occurrence: None)
  Receive Date: 20100130
  Receipt Date: 20091002
  Transmission Date: 20100710
  Serious: No
  Sender: FDA-Public Use
  Company Number: US-ABBOTT-09P-163-0601117-00

PATIENT
  Sex: Female
  Weight: 81.72 kg

DRUGS (9)
  1. HUMIRA [Suspect]
     Indication: RHEUMATOID ARTHRITIS
     Dates: start: 20060101
  2. ENALAPRIL MALEATE [Concomitant]
     Indication: HYPERTENSION
  3. MELOXICIN [Concomitant]
     Indication: PAIN
  4. FOLIC ACID [Concomitant]
     Indication: RHEUMATOID ARTHRITIS
  5. OXYBUTYNIN CHLORIDE [Concomitant]
     Indication: URINARY INCONTINENCE
  6. GLYBURIDE [Concomitant]
     Indication: DIABETES MELLITUS
  7. ATENOLOL [Concomitant]
     Indication: HYPERTENSION
  8. ESTROGEN [Concomitant]
     Indication: HORMONE REPLACEMENT THERAPY
  9. AMLODIPINE [Concomitant]
     Indication: HYPERTENSION

REACTIONS (4)
  - DENTAL CARIES [None]
  - TOOTH DISORDER [None]
  - TOOTH EROSION [None]
  - TOOTH LOSS [None]
